FAERS Safety Report 4602128-X (Version None)
Quarter: 2005Q1

REPORT INFORMATION
  Report Type: 
  Country: None (occurrence: None)
  Receive Date: 20050215
  Receipt Date: 20040825
  Transmission Date: 20050727
  Serious: Yes (Hospitalization, Other)
  Sender: FDA-Public Use
  Company Number: MC200400082

PATIENT
  Age: 60 Year
  Sex: Male
  Weight: 70 kg

DRUGS (15)
  1. ANGIOMAX [Suspect]
     Dosage: 100 MG, INTRAVENOUS
     Route: 042
     Dates: start: 20040301, end: 20040301
  2. VANCOMYCIN [Concomitant]
  3. VERSED (MIDALZOLAM HYDROCHLORIDE) [Concomitant]
  4. LASIC /SCH/ (FUROSEMIDE, FUROSEMIDE SODIUM) [Concomitant]
  5. FENTANYL [Concomitant]
  6. DOPAMINE (DOPAMINE) [Concomitant]
  7. EPINEPHRINE [Concomitant]
  8. HYDROCORTISONE [Concomitant]
  9. MILRINONE (MILRINONE) [Concomitant]
  10. NTG (GLYCERYL TRINITRATE) [Concomitant]
  11. PAVULON [Concomitant]
  12. AMICAR [Concomitant]
  13. CIPROFLOXACIN [Concomitant]
  14. SODIUM BICARBONATE IN PLASTIC CONTAINER [Concomitant]
  15. APROTININ [Concomitant]

REACTIONS (2)
  - HAEMORRHAGE [None]
  - THROMBOSIS [None]
